FAERS Safety Report 8831694 (Version 2)
Quarter: 2012Q4

REPORT INFORMATION
  Report Type: 
  Country: GB (occurrence: GB)
  Receive Date: 20121009
  Receipt Date: 20121016
  Transmission Date: 20130627
  Serious: Yes (Hospitalization)
  Sender: FDA-Public Use
  Company Number: GB-GLAXOSMITHKLINE-B0834477A

PATIENT
  Age: 38 Year
  Sex: Male

DRUGS (1)
  1. NIQUITIN [Suspect]
     Indication: EX-TOBACCO USER
     Dosage: 21MG Per day
     Route: 062
     Dates: start: 20120921, end: 20120922

REACTIONS (6)
  - Loss of consciousness [Unknown]
  - Road traffic accident [Unknown]
  - Dizziness [Unknown]
  - Lower limb fracture [Unknown]
  - Headache [Unknown]
  - Disturbance in attention [Unknown]
